FAERS Safety Report 15033943 (Version 1)
Quarter: 2018Q2

REPORT INFORMATION
  Report Type: Other
  Country: KR (occurrence: KR)
  Receive Date: 20180620
  Receipt Date: 20180620
  Transmission Date: 20180711
  Serious: Yes (Hospitalization)
  Sender: FDA-Public Use
  Company Number: KR-DENTSPLY-2018SCDP000209

PATIENT

DRUGS (5)
  1. EPHEDRINE. [Concomitant]
     Active Substance: EPHEDRINE
     Indication: PRODUCT USED FOR UNKNOWN INDICATION
     Dosage: UNK, OCCASIONALLY ADMINISTERING
  2. OXYTOCIN. [Concomitant]
     Active Substance: OXYTOCIN
     Indication: PRODUCT USED FOR UNKNOWN INDICATION
     Dosage: UNK
  3. LEVOBUPIVACAINE [Suspect]
     Active Substance: LEVOBUPIVACAINE
     Indication: EPIDURAL ANAESTHESIA
     Dosage: 5 ML, UNK
     Route: 008
  4. PHENYLEPHRINE [Concomitant]
     Active Substance: PHENYLEPHRINE\PHENYLEPHRINE HYDROCHLORIDE
     Indication: BLOOD PRESSURE MANAGEMENT
     Dosage: 40 MICROGRAM, UNK, OCCASIONALLY ADMINISTERING
  5. LIDOCAINE HCL [Suspect]
     Active Substance: LIDOCAINE HYDROCHLORIDE
     Indication: EPIDURAL ANAESTHESIA
     Dosage: 20 MG, INJECTED INTO THE INDWELLING EPIDURAL CATHETER OVER 5 MINUTES
     Route: 008

REACTIONS (6)
  - Exposure during pregnancy [Unknown]
  - Dysarthria [Unknown]
  - Vomiting [Unknown]
  - Hypotension [Unknown]
  - Myoclonus [Recovered/Resolved]
  - Nausea [Unknown]
